FAERS Safety Report 10397979 (Version 2)
Quarter: 2017Q1

REPORT INFORMATION
  Report Type: Spontaneous
  Country: GB (occurrence: GB)
  Receive Date: 20140821
  Receipt Date: 20170105
  Transmission Date: 20170428
  Serious: Yes (Other)
  Sender: FDA-Public Use
  Company Number: GB-009507513-1408GBR011080

PATIENT
  Age: 46 Year
  Sex: Male

DRUGS (3)
  1. FELODIPINE. [Concomitant]
     Active Substance: FELODIPINE
  2. LORATADINE. [Suspect]
     Active Substance: LORATADINE
     Indication: SEASONAL ALLERGY
     Dosage: 50 MG, UNK
     Route: 048
     Dates: start: 20140710, end: 2014
  3. TYLEX [Suspect]
     Active Substance: ACETAMINOPHEN\CODEINE PHOSPHATE
     Indication: ARTHRALGIA
     Dosage: 4 DF, UNK
     Route: 048
     Dates: start: 20140710, end: 2014

REACTIONS (1)
  - Epilepsy [Recovered/Resolved]

NARRATIVE: CASE EVENT DATE: 20140710
